FAERS Safety Report 11515425 (Version 1)
Quarter: 2015Q3

REPORT INFORMATION
  Report Type: Spontaneous
  Country: FR (occurrence: FR)
  Receive Date: 20150916
  Receipt Date: 20150916
  Transmission Date: 20151125
  Serious: Yes (Hospitalization)
  Sender: FDA-Public Use
  Company Number: FR-ASTRAZENECA-2015SE84161

PATIENT
  Age: 23857 Day
  Sex: Male

DRUGS (13)
  1. BI-TILDIEM [Concomitant]
     Active Substance: DILTIAZEM
  2. OXYNORM [Concomitant]
     Active Substance: OXYCODONE HYDROCHLORIDE
     Indication: PHANTOM PAIN
     Dates: start: 20150506
  3. COLCHICINE. [Suspect]
     Active Substance: COLCHICINE
     Indication: CHONDROCALCINOSIS
     Route: 048
     Dates: start: 20150517, end: 20150527
  4. RIVOTRIL [Concomitant]
     Active Substance: CLONAZEPAM
     Indication: PHANTOM PAIN
     Dates: start: 20150506
  5. FRAGMINE [Concomitant]
     Active Substance: DALTEPARIN SODIUM
     Dates: start: 20150505
  6. FENOFIBRATE. [Suspect]
     Active Substance: FENOFIBRATE
     Route: 048
     Dates: end: 20150527
  7. LYRICA [Suspect]
     Active Substance: PREGABALIN
     Indication: PHANTOM PAIN
     Route: 048
     Dates: start: 20150506, end: 20150527
  8. TOPALGIC [Concomitant]
     Active Substance: TRAMADOL
  9. INEXIUM [Suspect]
     Active Substance: ESOMEPRAZOLE
     Route: 048
     Dates: end: 20150527
  10. PARACETAMOL [Concomitant]
     Active Substance: ACETAMINOPHEN
  11. KARDEGIC [Concomitant]
     Active Substance: ASPIRIN LYSINE
  12. CEFTRIAXONE SODIUM. [Suspect]
     Active Substance: CEFTRIAXONE SODIUM
     Route: 042
     Dates: start: 20150505, end: 20150527
  13. OGAST [Concomitant]
     Active Substance: LANSOPRAZOLE

REACTIONS (4)
  - Neutropenia [Recovered/Resolved]
  - Phantom pain [Unknown]
  - Chondrocalcinosis [Unknown]
  - Rash pruritic [Unknown]

NARRATIVE: CASE EVENT DATE: 20150517
